FAERS Safety Report 5163871-X (Version None)
Quarter: 2006Q4

REPORT INFORMATION
  Report Type: 
  Country: None (occurrence: None)
  Receive Date: 20061124
  Receipt Date: 20061109
  Transmission Date: 20070319
  Serious: Yes (Death)
  Sender: FDA-Public Use
  Company Number: 2006141114

PATIENT
  Age: 2 Month

DRUGS (2)
  1. DEXROMETHORPHAN/PSEUDOEPHEDRINE [Suspect]
  2. SENNA (SENNA) [Suspect]

REACTIONS (2)
  - DRUG TOXICITY [None]
  - VICTIM OF HOMICIDE [None]
